FAERS Safety Report 20154770 (Version 4)
Quarter: 2022Q3

REPORT INFORMATION
  Report Type: Report from Study
  Country: US (occurrence: US)
  Receive Date: 20211207
  Receipt Date: 20220805
  Transmission Date: 20221027
  Serious: Yes (Other)
  Sender: FDA-Public Use
  Company Number: US-NOVARTISPH-NVSC2021US274844

PATIENT
  Sex: Male

DRUGS (5)
  1. ENTRESTO [Suspect]
     Active Substance: SACUBITRIL\VALSARTAN
     Indication: Product used for unknown indication
     Dosage: 1 DOSAGE FORM, BID (49/51 MG,48.6 MG SACUBITRIL AND 51.4 MG VALSARTAN)
     Route: 048
  2. METOPROLOL [Suspect]
     Active Substance: METOPROLOL
     Indication: Product used for unknown indication
     Dosage: 12.5 MG
     Route: 065
  3. METOPROLOL [Suspect]
     Active Substance: METOPROLOL
     Dosage: 0.5 DOSAGE FORM
     Route: 065
  4. ASPIRIN [Suspect]
     Active Substance: ASPIRIN
     Indication: Product used for unknown indication
     Dosage: UNK
     Route: 065
  5. PLAVIX [Concomitant]
     Active Substance: CLOPIDOGREL BISULFATE
     Indication: Product used for unknown indication
     Dosage: UNK
     Route: 065

REACTIONS (6)
  - Haemorrhage [Unknown]
  - Blood cholesterol decreased [Unknown]
  - Heart rate decreased [Unknown]
  - Weight gain poor [Unknown]
  - Hypotension [Unknown]
  - Dizziness [Unknown]
